FAERS Safety Report 9535576 (Version 2)
Quarter: 2013Q3

REPORT INFORMATION
  Report Type: Report from Study
  Country: US (occurrence: US)
  Receive Date: 20130919
  Receipt Date: 20130928
  Transmission Date: 20140515
  Serious: Yes (Hospitalization, Other)
  Sender: FDA-Public Use
  Company Number: US-ROCHE-1276744

PATIENT
  Age: 58 Year
  Sex: Male
  Weight: 82.63 kg

DRUGS (7)
  1. PEGASYS [Suspect]
     Indication: HEPATITIS C
     Route: 058
     Dates: start: 20130730, end: 20130910
  2. INCIVEK [Suspect]
     Indication: HEPATITIS C
     Route: 048
     Dates: start: 20130730, end: 20130910
  3. RIBAVIRIN [Suspect]
     Indication: HEPATITIS C
     Route: 065
  4. ALPRAZOLAM [Concomitant]
     Route: 065
  5. LASIX [Concomitant]
     Route: 065
  6. PERCOCET [Concomitant]
  7. SPIRONOLACTONE [Concomitant]
     Route: 065

REACTIONS (8)
  - Pancytopenia [Unknown]
  - Hepatic failure [Unknown]
  - Ascites [Unknown]
  - Oedema peripheral [Unknown]
  - Dyspnoea [Unknown]
  - Scrotal swelling [Unknown]
  - Generalised oedema [Unknown]
  - Thrombocytopenia [Unknown]
